FAERS Safety Report 5596774-7 (Version None)
Quarter: 2008Q1

REPORT INFORMATION
  Report Type: 
  Country: None (occurrence: None)
  Receive Date: 20080118
  Receipt Date: 20080109
  Transmission Date: 20080703
  Serious: Yes (Death)
  Sender: FDA-Public Use
  Company Number: US-PFIZER INC-2008003058

PATIENT
  Age: 55 Year
  Sex: Female

DRUGS (5)
  1. ATORVASTATIN [Suspect]
  2. VENLAFAXINE HCL [Suspect]
  3. ZOLPIDEM [Suspect]
  4. ALL OTHER THERAPEUTIC PRODUCTS [Suspect]
  5. OPIOIDS [Suspect]

REACTIONS (1)
  - COMPLETED SUICIDE [None]
